FAERS Safety Report 13178957 (Version 2)
Quarter: 2017Q2

REPORT INFORMATION
  Report Type: Spontaneous
  Country: US (occurrence: US)
  Receive Date: 20170202
  Receipt Date: 20170413
  Transmission Date: 20170830
  Serious: No
  Sender: FDA-Public Use
  Company Number: US-PFIZER INC-2017043553

PATIENT
  Age: 95 Year
  Sex: Female

DRUGS (1)
  1. IBUPROFEN. [Suspect]
     Active Substance: IBUPROFEN
     Indication: PAIN
     Dosage: 400 MG, 2X/DAY (4 YEARS AGO FOR ABOUT 3 WEEKS)
     Route: 048
     Dates: start: 2013

REACTIONS (1)
  - Drug intolerance [Not Recovered/Not Resolved]
